FAERS Safety Report 24298067 (Version 1)
Quarter: 2024Q3

REPORT INFORMATION
  Report Type: Spontaneous
  Country: US (occurrence: US)
  Receive Date: 20240909
  Receipt Date: 20240909
  Transmission Date: 20241017
  Serious: No
  Sender: BIOCON
  Company Number: US-BIOCON-BCN-2024-000054

PATIENT
  Age: 60 Year
  Sex: Male

DRUGS (1)
  1. ROSUVASTATIN [Suspect]
     Active Substance: ROSUVASTATIN\ROSUVASTATIN CALCIUM
     Indication: Product used for unknown indication
     Dates: start: 20240118

REACTIONS (3)
  - Fatigue [Unknown]
  - Muscular weakness [Unknown]
  - Arthralgia [Unknown]
